FAERS Safety Report 17056578 (Version 1)
Quarter: 2019Q4

REPORT INFORMATION
  Report Type: Spontaneous
  Country: CA (occurrence: CA)
  Receive Date: 20191121
  Receipt Date: 20191121
  Transmission Date: 20200122
  Serious: Yes (Other)
  Sender: FDA-Public Use
  Company Number: CA-TEVA-2019-CA-1138033

PATIENT
  Age: 41 Year
  Sex: Female

DRUGS (5)
  1. ALVESCO [Suspect]
     Active Substance: CICLESONIDE
     Indication: ASTHMA
     Dosage: 8 DOSAGE FORMS DAILY;
     Route: 048
  2. PREDNISONE. [Suspect]
     Active Substance: PREDNISONE
     Indication: PRODUCT USED FOR UNKNOWN INDICATION
     Route: 065
  3. NUCALA [Suspect]
     Active Substance: MEPOLIZUMAB
     Indication: PRODUCT USED FOR UNKNOWN INDICATION
     Route: 042
  4. DESOXYMETHASONE [Concomitant]
     Active Substance: DESOXIMETASONE
     Indication: PRODUCT USED FOR UNKNOWN INDICATION
     Route: 065
  5. FLUTICASONE PROPIONATE/SALMETEROL XINAFOATE [Suspect]
     Active Substance: FLUTICASONE PROPIONATE\SALMETEROL XINAFOATE
     Indication: ASTHMA
     Dosage: 4 DOSAGE FORMS DAILY;
     Route: 065

REACTIONS (12)
  - Arthritis [Unknown]
  - Chest discomfort [Unknown]
  - Dermatitis contact [Unknown]
  - Pyrexia [Unknown]
  - Blood pressure increased [Unknown]
  - Injection site discomfort [Unknown]
  - Malaise [Unknown]
  - Blood pressure diastolic increased [Unknown]
  - Disease recurrence [Unknown]
  - Pain [Unknown]
  - Drug ineffective [Unknown]
  - Pneumonia [Unknown]
